FAERS Safety Report 6434828-3 (Version None)
Quarter: 2009Q4

REPORT INFORMATION
  Report Type: 
  Country: None (occurrence: None)
  Receive Date: 20091110
  Receipt Date: 20091106
  Transmission Date: 20100525
  Serious: Yes (Death, Hospitalization)
  Sender: FDA-Public Use
  Company Number: JP-JNJFOC-20091100009

PATIENT
  Age: 55 Year
  Sex: Female

DRUGS (13)
  1. DUROTEP MT [Suspect]
     Route: 062
  2. DUROTEP MT [Suspect]
     Indication: CANCER PAIN
     Route: 062
  3. KADIAN [Suspect]
     Indication: CANCER PAIN
     Route: 048
  4. OPSO [Suspect]
     Route: 048
  5. OPSO [Suspect]
     Indication: DRUG USE FOR UNKNOWN INDICATION
     Route: 048
  6. MORPHINE HYDROCHLORIDE [Suspect]
     Route: 065
  7. MORPHINE HYDROCHLORIDE [Suspect]
     Route: 065
  8. MORPHINE HYDROCHLORIDE [Suspect]
     Route: 065
  9. MORPHINE HYDROCHLORIDE [Suspect]
     Indication: DRUG USE FOR UNKNOWN INDICATION
     Route: 065
  10. TRYPTANOL [Concomitant]
     Route: 048
  11. MOBIC [Concomitant]
     Route: 048
  12. LAC-B [Concomitant]
     Route: 048
  13. MAGLAX [Concomitant]
     Route: 048

REACTIONS (3)
  - DYSKINESIA [None]
  - RECTAL CANCER [None]
  - SOMNOLENCE [None]
